FAERS Safety Report 25183194 (Version 1)
Quarter: 2025Q2

REPORT INFORMATION
  Report Type: Spontaneous
  Country: FR (occurrence: FR)
  Receive Date: 20250410
  Receipt Date: 20250410
  Transmission Date: 20250717
  Serious: Yes (Hospitalization)
  Sender: MYLAN
  Company Number: FR-MYLANLABS-2025M1030500

PATIENT
  Age: 6 Year
  Sex: Male

DRUGS (44)
  1. METHYLPHENIDATE [Suspect]
     Active Substance: METHYLPHENIDATE
     Indication: Intellectual disability
  2. METHYLPHENIDATE [Suspect]
     Active Substance: METHYLPHENIDATE
     Indication: Neurodevelopmental disorder
     Route: 065
  3. METHYLPHENIDATE [Suspect]
     Active Substance: METHYLPHENIDATE
     Route: 065
  4. METHYLPHENIDATE [Suspect]
     Active Substance: METHYLPHENIDATE
  5. RISPERIDONE [Suspect]
     Active Substance: RISPERIDONE
     Indication: Intellectual disability
  6. RISPERIDONE [Suspect]
     Active Substance: RISPERIDONE
     Indication: Neurodevelopmental disorder
     Route: 065
  7. RISPERIDONE [Suspect]
     Active Substance: RISPERIDONE
     Route: 065
  8. RISPERIDONE [Suspect]
     Active Substance: RISPERIDONE
  9. MELATONIN [Suspect]
     Active Substance: MELATONIN
     Indication: Intellectual disability
  10. MELATONIN [Suspect]
     Active Substance: MELATONIN
     Indication: Neurodevelopmental disorder
     Route: 065
  11. MELATONIN [Suspect]
     Active Substance: MELATONIN
     Route: 065
  12. MELATONIN [Suspect]
     Active Substance: MELATONIN
  13. HYDROXYZINE [Suspect]
     Active Substance: HYDROXYZINE HYDROCHLORIDE
     Indication: Intellectual disability
  14. HYDROXYZINE [Suspect]
     Active Substance: HYDROXYZINE HYDROCHLORIDE
     Indication: Neurodevelopmental disorder
     Route: 065
  15. HYDROXYZINE [Suspect]
     Active Substance: HYDROXYZINE HYDROCHLORIDE
     Route: 065
  16. HYDROXYZINE [Suspect]
     Active Substance: HYDROXYZINE HYDROCHLORIDE
  17. CYAMEMAZINE [Suspect]
     Active Substance: CYAMEMAZINE
     Indication: Intellectual disability
  18. CYAMEMAZINE [Suspect]
     Active Substance: CYAMEMAZINE
     Indication: Neurodevelopmental disorder
     Route: 065
  19. CYAMEMAZINE [Suspect]
     Active Substance: CYAMEMAZINE
     Route: 065
  20. CYAMEMAZINE [Suspect]
     Active Substance: CYAMEMAZINE
  21. ARIPIPRAZOLE [Suspect]
     Active Substance: ARIPIPRAZOLE
     Indication: Intellectual disability
  22. ARIPIPRAZOLE [Suspect]
     Active Substance: ARIPIPRAZOLE
     Indication: Neurodevelopmental disorder
     Route: 065
  23. ARIPIPRAZOLE [Suspect]
     Active Substance: ARIPIPRAZOLE
     Route: 065
  24. ARIPIPRAZOLE [Suspect]
     Active Substance: ARIPIPRAZOLE
  25. TIAPRIDE [Suspect]
     Active Substance: TIAPRIDE
     Indication: Intellectual disability
  26. TIAPRIDE [Suspect]
     Active Substance: TIAPRIDE
     Indication: Neurodevelopmental disorder
     Route: 065
  27. TIAPRIDE [Suspect]
     Active Substance: TIAPRIDE
     Route: 065
  28. TIAPRIDE [Suspect]
     Active Substance: TIAPRIDE
  29. DESMOPRESSIN [Suspect]
     Active Substance: DESMOPRESSIN
     Indication: Intellectual disability
  30. DESMOPRESSIN [Suspect]
     Active Substance: DESMOPRESSIN
     Indication: Neurodevelopmental disorder
     Route: 065
  31. DESMOPRESSIN [Suspect]
     Active Substance: DESMOPRESSIN
     Route: 065
  32. DESMOPRESSIN [Suspect]
     Active Substance: DESMOPRESSIN
  33. CLONIDINE [Suspect]
     Active Substance: CLONIDINE
     Indication: Intellectual disability
     Dosage: 0.075 MILLIGRAM, QD
  34. CLONIDINE [Suspect]
     Active Substance: CLONIDINE
     Indication: Neurodevelopmental disorder
     Dosage: 0.075 MILLIGRAM, QD
     Route: 065
  35. CLONIDINE [Suspect]
     Active Substance: CLONIDINE
     Dosage: 0.075 MILLIGRAM, QD
     Route: 065
  36. CLONIDINE [Suspect]
     Active Substance: CLONIDINE
     Dosage: 0.075 MILLIGRAM, QD
  37. LEVETIRACETAM [Concomitant]
     Active Substance: LEVETIRACETAM
     Indication: Intellectual disability
  38. LEVETIRACETAM [Concomitant]
     Active Substance: LEVETIRACETAM
     Indication: Neurodevelopmental disorder
     Route: 065
  39. LEVETIRACETAM [Concomitant]
     Active Substance: LEVETIRACETAM
     Route: 065
  40. LEVETIRACETAM [Concomitant]
     Active Substance: LEVETIRACETAM
  41. TOPIRAMATE [Concomitant]
     Active Substance: TOPIRAMATE
     Indication: Intellectual disability
  42. TOPIRAMATE [Concomitant]
     Active Substance: TOPIRAMATE
     Indication: Neurodevelopmental disorder
     Route: 065
  43. TOPIRAMATE [Concomitant]
     Active Substance: TOPIRAMATE
     Route: 065
  44. TOPIRAMATE [Concomitant]
     Active Substance: TOPIRAMATE

REACTIONS (2)
  - Drug ineffective [Unknown]
  - Off label use [Unknown]
